FAERS Safety Report 9339247 (Version 2)
Quarter: 2013Q2

REPORT INFORMATION
  Report Type: Report from Study
  Country: US (occurrence: US)
  Receive Date: 20130610
  Receipt Date: 20130620
  Transmission Date: 20140414
  Serious: No
  Sender: FDA-Public Use
  Company Number: US-VERTEX PHARMACEUTICALS INC-2013-006787

PATIENT
  Age: 55 Year
  Sex: Female

DRUGS (3)
  1. VX-950 (TELAPREVIR) [Suspect]
     Indication: HEPATITIS C
     Dosage: UNK
     Route: 048
     Dates: start: 20130430
  2. RIBAVIRIN [Suspect]
     Indication: HEPATITIS C
     Dosage: UNK
     Route: 048
     Dates: start: 20130430
  3. PEGASYS [Suspect]
     Indication: HEPATITIS C
     Dosage: UNK
     Route: 058
     Dates: start: 20130430

REACTIONS (9)
  - Insomnia [Unknown]
  - Mood swings [Not Recovered/Not Resolved]
  - Thirst [Unknown]
  - Dry mouth [Not Recovered/Not Resolved]
  - Paraesthesia oral [Recovered/Resolved]
  - Vitamin D decreased [Not Recovered/Not Resolved]
  - Fatigue [Not Recovered/Not Resolved]
  - Oral candidiasis [Unknown]
  - Pruritus [Unknown]
